FAERS Safety Report 9106768 (Version 2)
Quarter: 2013Q1

REPORT INFORMATION
  Report Type: Spontaneous
  Country: IL (occurrence: IL)
  Receive Date: 20130221
  Receipt Date: 20130308
  Transmission Date: 20140127
  Serious: Yes (Hospitalization, Other)
  Sender: FDA-Public Use
  Company Number: IL-B.I. PHARMACEUTICALS,INC./RIDGEFIELD-2013-AP-00072RI

PATIENT
  Age: 78 Year
  Sex: Female

DRUGS (8)
  1. PRADAXA [Suspect]
     Indication: CEREBROVASCULAR ACCIDENT PROPHYLAXIS
     Dosage: 220 MG
     Route: 048
     Dates: start: 201201, end: 20130123
  2. PRADAXA [Suspect]
     Indication: ATRIAL FIBRILLATION
     Dosage: 220 MG
     Route: 048
     Dates: start: 20130125, end: 20130126
  3. PRADAXA [Suspect]
     Dosage: 150 MG
     Route: 048
     Dates: start: 20130128
  4. PROCOR [Concomitant]
     Indication: CARDIAC FIBRILLATION
     Dates: start: 201207
  5. SIMVASTATIN [Concomitant]
     Indication: HYPERLIPIDAEMIA
     Dosage: 40 MG
  6. CO-DIOVAN [Concomitant]
     Indication: HYPERTENSION
  7. INSULIN [Concomitant]
     Indication: DIABETES MELLITUS
     Dosage: FORMULATION: INJ.
  8. METFORMIN [Concomitant]
     Indication: DIABETES MELLITUS

REACTIONS (7)
  - Cardiac fibrillation [Recovered/Resolved]
  - Cardiac fibrillation [Not Recovered/Not Resolved]
  - Breast cancer [Not Recovered/Not Resolved]
  - Tumour excision [Not Recovered/Not Resolved]
  - Lymphadenectomy [Not Recovered/Not Resolved]
  - Gingival bleeding [Recovered/Resolved]
  - Gingival bleeding [Recovered/Resolved]
